FAERS Safety Report 5915532-4 (Version None)
Quarter: 2008Q4

REPORT INFORMATION
  Report Type: 
  Country: None (occurrence: None)
  Receive Date: 20081010
  Receipt Date: 20080707
  Transmission Date: 20090506
  Serious: No
  Sender: FDA-Public Use
  Company Number: A0736263A

PATIENT
  Age: 64 Year
  Sex: Female

DRUGS (12)
  1. TYKERB [Suspect]
     Indication: BREAST CANCER
     Dosage: 5TAB CYCLIC
     Route: 048
     Dates: start: 20080601
  2. XELODA [Concomitant]
  3. VERAPAMIL [Concomitant]
  4. FEXOFENADINE [Concomitant]
  5. SINGULAIR [Concomitant]
  6. TRIAMTERENE [Concomitant]
  7. LISINOPRIL [Concomitant]
  8. TEGRETOL [Concomitant]
  9. ACTOS [Concomitant]
  10. LYRICA [Concomitant]
  11. GLIMEPIRIDE [Concomitant]
  12. ZOLOFT [Concomitant]

REACTIONS (2)
  - OEDEMA PERIPHERAL [None]
  - PAIN IN EXTREMITY [None]
